FAERS Safety Report 7590703-2 (Version None)
Quarter: 2011Q3

REPORT INFORMATION
  Report Type: 
  Country: None (occurrence: None)
  Receive Date: 20110705
  Receipt Date: 20110630
  Transmission Date: 20111222
  Serious: Yes (Other)
  Sender: FDA-Public Use
  Company Number: CA-PFIZER INC-2011148883

PATIENT

DRUGS (2)
  1. BENZODIAZEPINE DERIVATIVES [Suspect]
     Indication: ANXIETY
     Dosage: UNK
  2. PREGABALIN [Suspect]
     Dosage: UNK

REACTIONS (1)
  - RESPIRATORY ARREST [None]
